FAERS Safety Report 7869015 (Version 5)
Quarter: 2013Q2

REPORT INFORMATION
  Report Type: Spontaneous
  Country: US (occurrence: US)
  Receive Date: 20110324
  Receipt Date: 20130403
  Transmission Date: 20140414
  Serious: Yes (Other)
  Sender: FDA-Public Use
  Company Number: US-BAYER-2011-024038

PATIENT
  Age: 26 Year
  Sex: Female
  Weight: 48 kg

DRUGS (6)
  1. YAZ [Suspect]
     Indication: PRODUCT USED FOR UNKNOWN INDICATION
     Dosage: UNK UNK, UNK
     Dates: start: 200809, end: 200903
  2. YASMIN [Suspect]
     Indication: PRODUCT USED FOR UNKNOWN INDICATION
     Dosage: UNK
     Dates: start: 200108, end: 200808
  3. NAPROSYN [Concomitant]
  4. RANITIDINE [Concomitant]
     Dosage: 300 MG, UNK
  5. NULEV [Concomitant]
     Dosage: 0.125 MG, UNK
  6. NAPROXEN [Concomitant]
     Dosage: 500 MG, UNK

REACTIONS (5)
  - Gallbladder disorder [None]
  - Cholecystitis chronic [None]
  - Cholelithiasis [None]
  - Injury [None]
  - Pain [None]
